FAERS Safety Report 7058825-2 (Version None)
Quarter: 2010Q4

REPORT INFORMATION
  Report Type: 
  Country: None (occurrence: None)
  Receive Date: 20101022
  Receipt Date: 20101015
  Transmission Date: 20110411
  Serious: Yes (Other)
  Sender: FDA-Public Use
  Company Number: US-CELGENEUS-163-20785-08010438

PATIENT
  Sex: Female

DRUGS (4)
  1. THALOMID [Suspect]
     Indication: MULTIPLE MYELOMA
     Route: 048
     Dates: start: 20061001
  2. THALOMID [Suspect]
     Route: 048
     Dates: start: 20061101
  3. THALOMID [Suspect]
     Dosage: 150-200MG
     Route: 048
     Dates: start: 20070701
  4. THALOMID [Suspect]
     Dosage: 100-200MG
     Route: 048
     Dates: start: 20080301

REACTIONS (1)
  - BLOOD HUMAN CHORIONIC GONADOTROPIN INCREASED [None]
